FAERS Safety Report 18017836 (Version 3)
Quarter: 2020Q4

REPORT INFORMATION
  Report Type: Other
  Country: DE (occurrence: DE)
  Receive Date: 20200714
  Receipt Date: 20201008
  Transmission Date: 20210113
  Serious: Yes (Other)
  Sender: FDA-Public Use
  Company Number: DE-ROCHE-2640248

PATIENT
  Age: 40 Year
  Sex: Female

DRUGS (5)
  1. SATIVEX [Concomitant]
     Active Substance: NABIXIMOLS
     Route: 050
     Dates: start: 2019
  2. URIVESC [Concomitant]
     Active Substance: TROSPIUM CHLORIDE
     Indication: BLADDER DYSFUNCTION
     Route: 048
     Dates: start: 2019
  3. OCRELIZUMAB. [Suspect]
     Active Substance: OCRELIZUMAB
     Indication: RELAPSING MULTIPLE SCLEROSIS
     Route: 042
     Dates: start: 20180704, end: 20180718
  4. MIRENA [Concomitant]
     Active Substance: LEVONORGESTREL
     Indication: CONTRACEPTION
     Route: 050
  5. OCRELIZUMAB. [Suspect]
     Active Substance: OCRELIZUMAB
     Indication: MULTIPLE SCLEROSIS
     Route: 042
     Dates: start: 20181219

REACTIONS (1)
  - Sinusitis [Recovered/Resolved]

NARRATIVE: CASE EVENT DATE: 20191212
